FAERS Safety Report 24267680 (Version 2)
Quarter: 2024Q3

REPORT INFORMATION
  Report Type: Spontaneous
  Country: US (occurrence: US)
  Receive Date: 20240830
  Receipt Date: 20240906
  Transmission Date: 20241016
  Serious: No
  Sender: PFIZER
  Company Number: US-PFIZER INC-PV202400111812

PATIENT
  Age: 72 Year
  Sex: Female
  Weight: 118.09 kg

DRUGS (1)
  1. EXEMESTANE [Suspect]
     Active Substance: EXEMESTANE
     Indication: Breast cancer stage I
     Dosage: UNK

REACTIONS (1)
  - Dizziness [Unknown]
